FAERS Safety Report 9500798 (Version 2)
Quarter: 2013Q3

REPORT INFORMATION
  Report Type: Spontaneous
  Country: BR (occurrence: BR)
  Receive Date: 20130905
  Receipt Date: 20130917
  Transmission Date: 20140515
  Serious: Yes (Other)
  Sender: FDA-Public Use
  Company Number: BR-BAYER-2013-107133

PATIENT
  Sex: Female

DRUGS (1)
  1. ASPIRINA PREVENT [Suspect]
     Dosage: 100 MG, QD
     Route: 048

REACTIONS (4)
  - Macular degeneration [Not Recovered/Not Resolved]
  - Retinal haemorrhage [Not Recovered/Not Resolved]
  - Gastrointestinal pain [None]
  - Gingival bleeding [None]
